FAERS Safety Report 13405883 (Version 2)
Quarter: 2017Q2

REPORT INFORMATION
  Report Type: Report from Study
  Country: US (occurrence: US)
  Receive Date: 20170405
  Receipt Date: 20170619
  Transmission Date: 20170830
  Serious: Yes (Death, Hospitalization)
  Sender: FDA-Public Use
  Company Number: US-JNJFOC-20170403451

PATIENT
  Age: 77 Year
  Sex: Male

DRUGS (22)
  1. DILTIAZEM HCL [Concomitant]
     Active Substance: DILTIAZEM HYDROCHLORIDE
     Route: 048
  2. JANUVIA [Concomitant]
     Active Substance: SITAGLIPTIN PHOSPHATE
  3. XANAX [Concomitant]
     Active Substance: ALPRAZOLAM
     Indication: ANXIETY
     Dosage: AS NEEDED
  4. MUPIROCIN. [Concomitant]
     Active Substance: MUPIROCIN
  5. XANAX [Concomitant]
     Active Substance: ALPRAZOLAM
     Indication: AGITATION
     Dosage: AS NEEDED
  6. TRAMADOL. [Concomitant]
     Active Substance: TRAMADOL
  7. IRON [Concomitant]
     Active Substance: IRON
  8. PANTOPRAZOLE SODIUM. [Concomitant]
     Active Substance: PANTOPRAZOLE SODIUM
     Route: 042
  9. IMBRUVICA [Suspect]
     Active Substance: IBRUTINIB
     Indication: CHRONIC LYMPHOCYTIC LEUKAEMIA
     Route: 048
     Dates: start: 20160601
  10. GLIPIZIDE. [Concomitant]
     Active Substance: GLIPIZIDE
  11. IMBRUVICA [Suspect]
     Active Substance: IBRUTINIB
     Indication: CHRONIC LYMPHOCYTIC LEUKAEMIA
     Route: 048
     Dates: start: 20160531
  12. ALDACTONE [Concomitant]
     Active Substance: SPIRONOLACTONE
     Route: 048
  13. ZOCOR [Concomitant]
     Active Substance: SIMVASTATIN
     Dosage: AT BEDTIME
  14. ASPIRIN. [Concomitant]
     Active Substance: ASPIRIN
     Dosage: THREE TIMES A WEEK M, W, F
     Route: 048
  15. ZESTRIL [Concomitant]
     Active Substance: LISINOPRIL
  16. LANOXIN [Concomitant]
     Active Substance: DIGOXIN
     Dosage: 3 TIMES A WEEK, M, W, F
  17. FISH OIL [Concomitant]
     Active Substance: FISH OIL
  18. LIDOCAINE HCL [Concomitant]
     Active Substance: LIDOCAINE HYDROCHLORIDE
     Dosage: DAILY
     Route: 062
  19. FENOFIBRATE. [Concomitant]
     Active Substance: FENOFIBRATE
     Dosage: 160 MG, QHS
  20. ZOLOFT [Concomitant]
     Active Substance: SERTRALINE HYDROCHLORIDE
     Dosage: AT BEDTIME
     Route: 048
  21. PRAVASTATIN SODIUM. [Concomitant]
     Active Substance: PRAVASTATIN SODIUM
     Dosage: 40 MG, QHS
     Route: 048
  22. FERROUS SULFATE. [Concomitant]
     Active Substance: FERROUS SULFATE
     Indication: CHRONIC KIDNEY DISEASE
     Dosage: WITH MEALS
     Route: 048

REACTIONS (8)
  - Prostatomegaly [Unknown]
  - Anxiety [Unknown]
  - Disease progression [Fatal]
  - Marginal zone lymphoma [Unknown]
  - Atrial fibrillation [Unknown]
  - Cholelithiasis [Unknown]
  - Emphysema [Unknown]
  - Limb injury [Unknown]

NARRATIVE: CASE EVENT DATE: 2017
